FAERS Safety Report 13671526 (Version 6)
Quarter: 2018Q2

REPORT INFORMATION
  Report Type: Report from Study
  Country: US (occurrence: US)
  Receive Date: 20170620
  Receipt Date: 20180611
  Transmission Date: 20180711
  Serious: Yes (Other)
  Sender: FDA-Public Use
  Company Number: US-ACTELION-A-NJ2017-155432

PATIENT
  Age: 54 Year
  Sex: Male
  Weight: 136.5 kg

DRUGS (5)
  1. UPTRAVI [Suspect]
     Active Substance: SELEXIPAG
     Indication: PULMONARY ARTERIAL HYPERTENSION
     Dosage: 1600 MCG, BID
     Route: 048
  2. OPSUMIT [Suspect]
     Active Substance: MACITENTAN
     Indication: PULMONARY ARTERIAL HYPERTENSION
     Dosage: 10 MG, QD
     Route: 048
  3. OXYGEN. [Concomitant]
     Active Substance: OXYGEN
  4. ADEMPAS [Concomitant]
     Active Substance: RIOCIGUAT
  5. ELIQUIS [Concomitant]
     Active Substance: APIXABAN

REACTIONS (17)
  - Fatigue [Unknown]
  - Gastrooesophageal reflux disease [Unknown]
  - Rhinorrhoea [Unknown]
  - Multiple allergies [Unknown]
  - Osteoarthritis [Unknown]
  - Hypersensitivity [Unknown]
  - Decreased appetite [Recovering/Resolving]
  - Nasal disorder [Unknown]
  - Atrial fibrillation [Unknown]
  - Heat exhaustion [Unknown]
  - Fluid retention [Unknown]
  - Weight decreased [Unknown]
  - Nausea [Unknown]
  - Unevaluable event [Unknown]
  - Malaise [Unknown]
  - Headache [Unknown]
  - Diverticulitis [Unknown]

NARRATIVE: CASE EVENT DATE: 201804
